FAERS Safety Report 5471395-5 (Version None)
Quarter: 2007Q3

REPORT INFORMATION
  Report Type: 
  Country: None (occurrence: None)
  Receive Date: 20070928
  Receipt Date: 20060927
  Transmission Date: 20080115
  Serious: No
  Sender: FDA-Public Use
  Company Number: US-BRISTOL-MYERS SQUIBB COMPANY-13523527

PATIENT
  Age: 45 Year
  Sex: Female
  Weight: 58 kg

DRUGS (1)
  1. DEFINITY [Suspect]
     Indication: CARDIAC STRESS TEST
     Dosage: PATIENT RECEIVED 1.3 CC IN 8.7 CC OF NORMAL SALINE
     Dates: start: 20060927

REACTIONS (2)
  - EYELID FUNCTION DISORDER [None]
  - URTICARIA [None]
